FAERS Safety Report 7329761-9 (Version None)
Quarter: 2011Q1

REPORT INFORMATION
  Report Type: 
  Country: None (occurrence: None)
  Receive Date: 20110303
  Receipt Date: 20110228
  Transmission Date: 20110831
  Serious: Yes (Other)
  Sender: FDA-Public Use
  Company Number: US-PFIZER INC-2011043550

PATIENT
  Sex: Male
  Weight: 112 kg

DRUGS (3)
  1. PROLIXIN [Concomitant]
     Dosage: UNK
  2. CHANTIX [Suspect]
     Indication: SMOKING CESSATION THERAPY
     Dosage: 0.5 MG, DAILY
     Route: 048
     Dates: start: 20110218, end: 20110218
  3. REMERON [Concomitant]
     Dosage: UNK

REACTIONS (2)
  - THOUGHT BLOCKING [None]
  - SUICIDAL IDEATION [None]
